FAERS Safety Report 7036009-1 (Version None)
Quarter: 2010Q4

REPORT INFORMATION
  Report Type: 
  Country: None (occurrence: None)
  Receive Date: 20101007
  Receipt Date: 20101007
  Transmission Date: 20110411
  Serious: No
  Sender: FDA-Public Use
  Company Number: None

PATIENT
  Sex: Female
  Weight: 63.05 kg

DRUGS (5)
  1. SORAFENIB [Suspect]
     Indication: BREAST CANCER METASTATIC
     Dosage: 200MG 2 TABS TWICE DAILY
     Dates: start: 20100930, end: 20101001
  2. PACLITAXEL [Concomitant]
     Dosage: CYCLE 1
  3. PROCHLORPERAZINE [Concomitant]
  4. RESOURCE GLUTASOL [Concomitant]
  5. ROBITUSSIN A-C [Concomitant]

REACTIONS (3)
  - EPISTAXIS [None]
  - HAEMOPTYSIS [None]
  - UPPER RESPIRATORY TRACT INFECTION [None]
